FAERS Safety Report 5913905-7 (Version None)
Quarter: 2008Q4

REPORT INFORMATION
  Report Type: 
  Country: None (occurrence: None)
  Receive Date: 20081009
  Receipt Date: 20080930
  Transmission Date: 20090506
  Serious: Yes (Hospitalization)
  Sender: FDA-Public Use
  Company Number: B0539553A

PATIENT
  Age: 34 Year
  Sex: Male

DRUGS (1)
  1. ARIXTRA [Suspect]
     Indication: THROMBOSIS PROPHYLAXIS
     Route: 058
     Dates: start: 20080912, end: 20080915

REACTIONS (5)
  - FACE OEDEMA [None]
  - HYPERSENSITIVITY [None]
  - INFLAMMATION [None]
  - PYREXIA [None]
  - URTICARIA [None]
